FAERS Safety Report 8608831-9 (Version None)
Quarter: 2012Q3

REPORT INFORMATION
  Report Type: 
  Country: None (occurrence: None)
  Receive Date: 20120821
  Receipt Date: 20120816
  Transmission Date: 20120928
  Serious: Yes (Life-Threatening)
  Sender: FDA-Public Use
  Company Number: LT-ROCHE-1098808

PATIENT
  Age: 48 Year
  Sex: Male
  Weight: 85 kg

DRUGS (1)
  1. ZELBORAF [Suspect]
     Indication: METASTATIC MALIGNANT MELANOMA
     Dosage: DOSE FORM: 240, LAST DOSE PRIOR TO SAE: 02/AUG/2012
     Route: 048
     Dates: start: 20120201, end: 20120803

REACTIONS (1)
  - LOSS OF CONSCIOUSNESS [None]
